FAERS Safety Report 9037294 (Version 2)
Quarter: 2013Q2

REPORT INFORMATION
  Report Type: Spontaneous
  Country: US (occurrence: None)
  Receive Date: 20130115
  Receipt Date: 20130403
  Transmission Date: 20140414
  Serious: Yes (Hospitalization)
  Sender: FDA-Public Use
  Company Number: DSU-2013-00159

PATIENT
  Age: 61 Year
  Sex: Female
  Weight: 127.01 kg

DRUGS (5)
  1. TRIBENZOR [Suspect]
     Indication: HYPERTENSION
     Route: 048
     Dates: start: 20111117, end: 2012
  2. GLYBURIDE (GLIBENCLAMIDE) (GLIBENCLAMIDE) [Concomitant]
  3. METFORMIN (METFORMIN) (METFORMIN) [Concomitant]
  4. VERAPAMIL(VERAPAMIL) (VERAPAMIL) [Concomitant]
  5. LASIX (FUROSEMIDE) (FUROSEMIDE) [Concomitant]

REACTIONS (1)
  - Abdominal pain [None]
